FAERS Safety Report 17241166 (Version 1)
Quarter: 2020Q1

REPORT INFORMATION
  Report Type: Spontaneous
  Country: FR (occurrence: FR)
  Receive Date: 20200107
  Receipt Date: 20200107
  Transmission Date: 20200409
  Serious: Yes (Other)
  Sender: FDA-Public Use
  Company Number: PHHY2019FR228014

PATIENT
  Age: 51 Year
  Weight: 46 kg

DRUGS (1)
  1. LUTATHERA [Suspect]
     Active Substance: LUTETIUM OXODOTREOTIDE LU-177
     Indication: PRODUCT USED FOR UNKNOWN INDICATION
     Dosage: 7.4 GBQ, QMO (EVERY TWO MONTHS)
     Route: 065
     Dates: start: 20180517

REACTIONS (5)
  - Leukopenia [Not Recovered/Not Resolved]
  - Migraine [Unknown]
  - Lymphopenia [Not Recovered/Not Resolved]
  - Fatigue [Not Recovered/Not Resolved]
  - Creatinine renal clearance abnormal [Unknown]

NARRATIVE: CASE EVENT DATE: 20180520
